FAERS Safety Report 6551777-0 (Version None)
Quarter: 2010Q1

REPORT INFORMATION
  Report Type: 
  Country: None (occurrence: None)
  Receive Date: 20100126
  Receipt Date: 20100118
  Transmission Date: 20100710
  Serious: Yes (Hospitalization)
  Sender: FDA-Public Use
  Company Number: JP-ROCHE-681043

PATIENT
  Age: 74 Year
  Sex: Female

DRUGS (5)
  1. AVASTIN [Suspect]
     Indication: RECTAL CANCER
     Route: 041
     Dates: start: 20100105
  2. ELPLAT [Concomitant]
     Route: 041
  3. 5-FU [Concomitant]
     Route: 040
  4. 5-FU [Concomitant]
     Route: 041
  5. LEVOFOLINATE [Concomitant]
     Route: 041

REACTIONS (1)
  - GASTRODUODENAL ULCER [None]
